FAERS Safety Report 8255408 (Version 2)
Quarter: 2012Q4

REPORT INFORMATION
  Report Type: 
  Country: US (occurrence: US)
  Receive Date: 20111118
  Receipt Date: 20120914
  Transmission Date: 20130627
  Serious: Yes (Hospitalization, Other)
  Sender: FDA-Public Use
  Company Number: US-ELI_LILLY_AND_COMPANY-US201111003683

PATIENT
  Sex: Male

DRUGS (7)
  1. ZYPREXA [Suspect]
     Indication: MENTAL DISORDER
     Dosage: 10 mg, qd
     Route: 048
  2. ZYPREXA [Suspect]
     Dosage: 10 mg, tid
     Route: 048
  3. XANAX [Concomitant]
  4. INSULIN [Concomitant]
  5. ASPIRIN [Concomitant]
  6. TRAMADOL [Concomitant]
  7. IBUPROFEN [Concomitant]

REACTIONS (13)
  - Diabetic coma [Recovered/Resolved]
  - Diabetes mellitus [Unknown]
  - Pancreatic disorder [Unknown]
  - Blood glucose decreased [Recovered/Resolved]
  - Visual acuity reduced [Unknown]
  - Memory impairment [Unknown]
  - Prescribed overdose [Recovered/Resolved]
  - Off label use [Recovered/Resolved]
  - Accidental overdose [Recovered/Resolved]
  - Vomiting [Recovered/Resolved]
  - Injection site swelling [Recovered/Resolved]
  - Drug withdrawal syndrome [Unknown]
  - Agitation [Unknown]
